FAERS Safety Report 7287884-7 (Version None)
Quarter: 2011Q1

REPORT INFORMATION
  Report Type: 
  Country: None (occurrence: None)
  Receive Date: 20110211
  Receipt Date: 20101207
  Transmission Date: 20110831
  Serious: No
  Sender: FDA-Public Use
  Company Number: A0896963A

PATIENT
  Age: 61 Year
  Sex: Female

DRUGS (7)
  1. TREXIMET [Suspect]
     Indication: MIGRAINE
     Dosage: 1TAB PER DAY
     Route: 048
     Dates: start: 20101110, end: 20101119
  2. CRESTOR [Concomitant]
  3. METOPROLOL [Concomitant]
  4. ADVAIR [Concomitant]
  5. XANAX [Concomitant]
  6. TIAZAC [Concomitant]
  7. DIOVAN [Concomitant]

REACTIONS (1)
  - DRUG INEFFECTIVE [None]
